FAERS Safety Report 21368625 (Version 1)
Quarter: 2022Q3

REPORT INFORMATION
  Report Type: Report from Study
  Country: BR (occurrence: None)
  Receive Date: 20220923
  Receipt Date: 20220923
  Transmission Date: 20221026
  Serious: Yes (Other)
  Sender: FDA-Public Use
  Company Number: BR-Merck Healthcare KGaA-9352339

PATIENT
  Sex: Female

DRUGS (3)
  1. REBIF [Suspect]
     Active Substance: INTERFERON BETA-1A
     Indication: Multiple sclerosis
     Dates: start: 20020717, end: 20111015
  2. REBIF [Suspect]
     Active Substance: INTERFERON BETA-1A
     Dates: start: 20121101, end: 20200120
  3. INTERFERON BETA-1A [Suspect]
     Active Substance: INTERFERON BETA-1A
     Indication: Multiple sclerosis
     Route: 058
     Dates: start: 20200122

REACTIONS (5)
  - Hypercalciuria [Unknown]
  - Nephrocalcinosis [Unknown]
  - Myalgia [Unknown]
  - Anxiety [Unknown]
  - Insomnia [Unknown]
